FAERS Safety Report 12270359 (Version 1)
Quarter: 2016Q2

REPORT INFORMATION
  Report Type: Spontaneous
  Country: JP (occurrence: JP)
  Receive Date: 20160415
  Receipt Date: 20160415
  Transmission Date: 20160815
  Serious: Yes (Death)
  Sender: FDA-Public Use
  Company Number: US-ASTRAZENECA-2016SE17988

PATIENT
  Age: 44 Year
  Sex: Female
  Weight: 59.5 kg

DRUGS (8)
  1. SINGULAIR [Concomitant]
     Active Substance: MONTELUKAST SODIUM
     Route: 048
  2. LOXOPROFEN [Concomitant]
     Active Substance: LOXOPROFEN
     Route: 048
  3. POSTERISAN FORTE [Concomitant]
     Active Substance: LIDOCAINE
     Route: 061
  4. XALKORI [Suspect]
     Active Substance: CRIZOTINIB
     Indication: NON-SMALL CELL LUNG CANCER
     Route: 048
     Dates: start: 20141003, end: 20151028
  5. NEXIUM [Suspect]
     Active Substance: ESOMEPRAZOLE MAGNESIUM
     Indication: NON-SMALL CELL LUNG CANCER
     Route: 048
     Dates: start: 20141008, end: 20141212
  6. MEPTIN [Concomitant]
     Active Substance: PROCATEROL HYDROCHLORIDE
     Route: 048
  7. CALCIUM LACTATE [Concomitant]
     Active Substance: CALCIUM LACTATE
     Route: 048
  8. CALFINA [Concomitant]
     Active Substance: ALFACALCIDOL
     Route: 048

REACTIONS (2)
  - Dysgeusia [Recovered/Resolved]
  - Acute respiratory distress syndrome [Fatal]

NARRATIVE: CASE EVENT DATE: 20141014
